FAERS Safety Report 18666197 (Version 2)
Quarter: 2020Q4

REPORT INFORMATION
  Report Type: Spontaneous
  Country: ES (occurrence: ES)
  Receive Date: 20201226
  Receipt Date: 20201229
  Transmission Date: 20210114
  Serious: Yes (Hospitalization)
  Sender: FDA-Public Use
  Company Number: ES-009507513-2012ESP010430

PATIENT
  Age: 23 Year
  Sex: Male

DRUGS (1)
  1. CELESTONE CRONODOSE [Suspect]
     Active Substance: BETAMETHASONE
     Indication: TENDONITIS
     Dosage: UNK, IN THE RIGHT SHOULDER
     Route: 042
     Dates: start: 20201218, end: 20201218

REACTIONS (4)
  - Headache [Recovered/Resolved]
  - Blood bilirubin increased [Recovered/Resolved]
  - Anxiety [Recovered/Resolved]
  - Incorrect route of product administration [Unknown]

NARRATIVE: CASE EVENT DATE: 20201218
